FAERS Safety Report 10226369 (Version 1)
Quarter: 2014Q2

REPORT INFORMATION
  Report Type: Report from Study
  Country: US (occurrence: US)
  Receive Date: 20140609
  Receipt Date: 20140609
  Transmission Date: 20141212
  Serious: Yes (Hospitalization)
  Sender: FDA-Public Use
  Company Number: US-ABBVIE-14P-163-1243141-00

PATIENT
  Age: 41 Year
  Sex: Female

DRUGS (22)
  1. HUMIRA [Suspect]
     Indication: COLITIS ULCERATIVE
     Dates: start: 20140227, end: 20140227
  2. HUMIRA [Suspect]
     Dosage: DAY 15
  3. HUMIRA [Suspect]
  4. MORPHINE [Suspect]
     Indication: PAIN
  5. VITAMIN D NOS [Concomitant]
     Indication: PRODUCT USED FOR UNKNOWN INDICATION
     Route: 048
  6. ZINC SULFATE [Concomitant]
     Indication: HEPATIC FUNCTION ABNORMAL
     Route: 048
  7. PENTOXIFYLLINE [Concomitant]
     Indication: HEPATIC FUNCTION ABNORMAL
     Route: 048
  8. REMERON [Concomitant]
     Indication: ANXIETY
     Dosage: AT NIGHT
     Route: 048
  9. REMERON [Concomitant]
     Indication: INSOMNIA
  10. PROTONIX [Concomitant]
     Indication: GASTROOESOPHAGEAL REFLUX DISEASE
     Route: 048
  11. UCERIS [Concomitant]
     Indication: COLITIS ULCERATIVE
  12. TOPAMAX [Concomitant]
     Indication: MIGRAINE PROPHYLAXIS
     Route: 048
  13. LEXAPRO [Concomitant]
     Indication: ANXIETY
     Route: 048
  14. LEXAPRO [Concomitant]
     Indication: DEPRESSION
  15. SINGULAIR [Concomitant]
     Indication: RHINITIS ALLERGIC
     Route: 048
  16. FLEXERIL [Concomitant]
     Indication: NECK PAIN
     Route: 048
  17. MILK THISTLE [Concomitant]
     Indication: HEPATIC FUNCTION ABNORMAL
     Route: 048
  18. PAIN BLOCK [Concomitant]
     Indication: PRODUCT USED FOR UNKNOWN INDICATION
  19. TRAMADOL [Concomitant]
     Indication: PAIN
     Route: 048
  20. ZOFRAN [Concomitant]
     Indication: NAUSEA
     Route: 048
  21. PHENERGAN [Concomitant]
     Indication: NAUSEA
  22. NULEV [Concomitant]
     Indication: ABDOMINAL PAIN
     Route: 048

REACTIONS (10)
  - Feeling abnormal [Recovering/Resolving]
  - Pyrexia [Recovering/Resolving]
  - Chills [Recovering/Resolving]
  - Nausea [Recovering/Resolving]
  - Headache [Recovering/Resolving]
  - Kidney infection [Recovering/Resolving]
  - Chest pain [Recovering/Resolving]
  - Back pain [Recovering/Resolving]
  - Urticaria [Recovering/Resolving]
  - Pneumonia [Recovering/Resolving]
